FAERS Safety Report 20172411 (Version 1)
Quarter: 2021Q4

REPORT INFORMATION
  Report Type: Spontaneous
  Country: US (occurrence: US)
  Receive Date: 20211210
  Receipt Date: 20211210
  Transmission Date: 20220303
  Serious: Yes (Other)
  Sender: FDA-Public Use
  Company Number: US-SA-2021SA412263

PATIENT
  Sex: Male

DRUGS (6)
  1. JEVTANA [Suspect]
     Active Substance: CABAZITAXEL
     Dosage: UNK
     Dates: start: 20210106, end: 20210915
  2. TAXOTERE [Suspect]
     Active Substance: DOCETAXEL
     Dosage: UNK (SIX CYCLES 12/4/2018 - 3/25/2018)
  3. TAXOTERE [Suspect]
     Active Substance: DOCETAXEL
     Dosage: UNK
     Dates: start: 20200203, end: 20200526
  4. XTANDI [Suspect]
     Active Substance: ENZALUTAMIDE
     Dosage: UNK
     Dates: start: 201705, end: 201811
  5. CASODEX [Suspect]
     Active Substance: BICALUTAMIDE
     Dosage: UNK
     Dates: start: 201701, end: 201704
  6. LUPRON [Suspect]
     Active Substance: LEUPROLIDE ACETATE
     Dosage: UNK
     Dates: start: 2008

REACTIONS (2)
  - Hormone-refractory prostate cancer [Unknown]
  - Disease progression [Unknown]
